FAERS Safety Report 19107543 (Version 1)
Quarter: 2021Q2

REPORT INFORMATION
  Report Type: Spontaneous
  Country: US (occurrence: US)
  Receive Date: 20210408
  Receipt Date: 20210408
  Transmission Date: 20210717
  Serious: Yes (Hospitalization)
  Sender: FDA-Public Use
  Company Number: None

PATIENT
  Age: 69 Year
  Sex: Male
  Weight: 83.9 kg

DRUGS (1)
  1. TOPOTECAN [Suspect]
     Active Substance: TOPOTECAN HYDROCHLORIDE
     Dates: end: 20210326

REACTIONS (6)
  - Dyspnoea [None]
  - Peripheral swelling [None]
  - Cough [None]
  - Pneumonia [None]
  - Hypertension [None]
  - Tachypnoea [None]

NARRATIVE: CASE EVENT DATE: 20210405
